FAERS Safety Report 23284655 (Version 2)
Quarter: 2023Q4

REPORT INFORMATION
  Report Type: Spontaneous
  Country: US (occurrence: US)
  Receive Date: 20231211
  Receipt Date: 20231227
  Transmission Date: 20240110
  Serious: No
  Sender: FDA-Public Use
  Company Number: US-Calliditas-2023CAL01567

PATIENT
  Age: 32 Year
  Sex: Female

DRUGS (2)
  1. TARPEYO [Suspect]
     Active Substance: BUDESONIDE
     Indication: IgA nephropathy
     Dosage: 16 MG (4 MG CAPSULES) ONCE DAILY
     Route: 048
     Dates: start: 20231107
  2. LOSARTAN [Concomitant]
     Active Substance: LOSARTAN

REACTIONS (8)
  - Nausea [Unknown]
  - Vomiting [Unknown]
  - Abdominal distension [Unknown]
  - Anxiety [Unknown]
  - Dyspnoea [Unknown]
  - Insomnia [Unknown]
  - Increased appetite [Recovered/Resolved]
  - Constipation [Unknown]
